FAERS Safety Report 10949828 (Version 1)
Quarter: 2015Q1

REPORT INFORMATION
  Report Type: Spontaneous
  Country: US (occurrence: None)
  Receive Date: 20150226
  Receipt Date: 20150226
  Transmission Date: 20150721
  Serious: Yes (Hospitalization, Other)
  Sender: FDA-Public Use
  Company Number: TPA2010A05198

PATIENT
  Age: 72 Year
  Sex: Male
  Weight: 77.11 kg

DRUGS (13)
  1. PERCOCET (PARACETAMOL, OXYCODONE HYDROCHLORIDE) [Concomitant]
  2. LORATADINE. [Concomitant]
     Active Substance: LORATADINE
  3. METFORMIN [Concomitant]
     Active Substance: METFORMIN HYDROCHLORIDE
  4. ACTOS [Suspect]
     Active Substance: PIOGLITAZONE HYDROCHLORIDE
     Indication: TYPE 2 DIABETES MELLITUS
     Route: 048
     Dates: start: 20100127, end: 20100330
  5. HYDROCODONE/APAP (PARACETAMOL, HYDROCODONE) [Concomitant]
  6. ASPIRIN. [Concomitant]
     Active Substance: ASPIRIN
  7. GLYBURIDE (GLIBENCLAMIDE) [Concomitant]
     Active Substance: GLYBURIDE
  8. EXFORGE (ALL OTHER THERAPEUTIC PRODUCTS) [Concomitant]
  9. LOTENSIN 5/20 (BENAZEPRIL HYDROCHLORIDE) [Concomitant]
  10. INSULIN [Concomitant]
     Active Substance: INSULIN NOS
  11. FUROSEMIDE. [Concomitant]
     Active Substance: FUROSEMIDE
  12. LEVIMIR (ALL OTHER THERAPEUTIC PRODUCTS) [Concomitant]
  13. LORAZEPAM. [Concomitant]
     Active Substance: LORAZEPAM

REACTIONS (34)
  - Hiatus hernia [None]
  - Aspiration [None]
  - Erythema [None]
  - Pain [None]
  - Blood glucose decreased [None]
  - Macular oedema [None]
  - Abdominal pain upper [None]
  - Cardiac failure [None]
  - Dizziness [None]
  - Oropharyngeal pain [None]
  - Herpes zoster [None]
  - Decreased appetite [None]
  - Vision blurred [None]
  - Aspiration tracheal [None]
  - Dysphagia [None]
  - Anaemia [None]
  - Vomiting [None]
  - Sinusitis [None]
  - Joint swelling [None]
  - Insomnia [None]
  - Diabetic neuropathy [None]
  - Gait disturbance [None]
  - Nausea [None]
  - Headache [None]
  - Skin irritation [None]
  - Weight bearing difficulty [None]
  - Tremor [None]
  - Fatigue [None]
  - Weight decreased [None]
  - Depression [None]
  - Penile oedema [None]
  - Inflammation [None]
  - Feeling hot [None]
  - Myalgia [None]

NARRATIVE: CASE EVENT DATE: 201002
